FAERS Safety Report 9848018 (Version 1)
Quarter: 2014Q1

REPORT INFORMATION
  Report Type: Spontaneous
  Country: US (occurrence: None)
  Receive Date: 20140117
  Receipt Date: 20140117
  Transmission Date: 20141002
  Serious: Yes (Death)
  Sender: FDA-Public Use
  Company Number: B0958753A

PATIENT
  Age: 43 Year
  Sex: Male

DRUGS (4)
  1. PAROXETINE [Suspect]
     Indication: PRODUCT USED FOR UNKNOWN INDICATION
     Route: 048
  2. PARACETAMOL [Suspect]
     Route: 048
  3. OXYCODONE [Suspect]
  4. CHLORDIAZEPOXIDE [Suspect]

REACTIONS (1)
  - Drug abuse [None]
